FAERS Safety Report 17913846 (Version 1)
Quarter: 2020Q2

REPORT INFORMATION
  Report Type: Not Available
  Country: US (occurrence: US)
  Receive Date: 20200618
  Receipt Date: 20200618
  Transmission Date: 20200714
  Serious: No
  Sender: FDA-Public Use
  Company Number: US-NEUROCRINE BIOSCIENCES INC.-2020NBI01931

PATIENT
  Age: 32 Year
  Sex: Female

DRUGS (1)
  1. INGREZZA [Suspect]
     Active Substance: VALBENAZINE
     Indication: TARDIVE DYSKINESIA
     Route: 048
     Dates: start: 20200512

REACTIONS (4)
  - Musculoskeletal stiffness [Unknown]
  - Drooling [Unknown]
  - Dysarthria [Unknown]
  - Tremor [Unknown]

NARRATIVE: CASE EVENT DATE: 20200514
